FAERS Safety Report 7806277-4 (Version None)
Quarter: 2011Q4

REPORT INFORMATION
  Report Type: 
  Country: None (occurrence: None)
  Receive Date: 20111006
  Receipt Date: 20111006
  Transmission Date: 20120403
  Serious: Yes (Other)
  Sender: FDA-Public Use
  Company Number: None

PATIENT
  Sex: Female
  Weight: 99.7913 kg

DRUGS (1)
  1. METFORMIN HCL [Suspect]
     Dosage: 500MG TWO BID ORAL
     Route: 048
     Dates: start: 20110101

REACTIONS (2)
  - PRURITUS [None]
  - URTICARIA [None]
